FAERS Safety Report 22105396 (Version 2)
Quarter: 2023Q2

REPORT INFORMATION
  Report Type: Spontaneous
  Country: US (occurrence: US)
  Receive Date: 20230317
  Receipt Date: 20230410
  Transmission Date: 20230722
  Serious: Yes (Hospitalization, Other)
  Sender: FDA-Public Use
  Company Number: US-AUROBINDO-AUR-APL-2023-011739

PATIENT
  Age: 52 Year
  Sex: Male

DRUGS (4)
  1. ESCITALOPRAM [Suspect]
     Active Substance: ESCITALOPRAM OXALATE
     Indication: Generalised anxiety disorder
     Dosage: 10 MILLIGRAM, DAILY
     Route: 065
     Dates: start: 202103
  2. PRUCALOPRIDE [Suspect]
     Active Substance: PRUCALOPRIDE
     Indication: Irritable bowel syndrome
     Dosage: 2 MILLIGRAM, DAILY
     Route: 065
     Dates: start: 202108
  3. DICYCLOMINE [Concomitant]
     Active Substance: DICYCLOMINE HYDROCHLORIDE
     Indication: Product used for unknown indication
     Dosage: 20 MILLIGRAM, 3 TIMES A DAY
     Route: 065
  4. TAMSULOSIN [Concomitant]
     Active Substance: TAMSULOSIN
     Indication: Product used for unknown indication
     Dosage: 0.4 MILLIGRAM, DAILY
     Route: 065

REACTIONS (1)
  - Mania [Recovering/Resolving]
